FAERS Safety Report 8322155-9 (Version None)
Quarter: 2012Q2

REPORT INFORMATION
  Report Type: 
  Country: None (occurrence: None)
  Receive Date: 20120430
  Receipt Date: 20100105
  Transmission Date: 20120825
  Serious: No
  Sender: FDA-Public Use
  Company Number: US-TEVA-2010000028

PATIENT
  Age: 46 Year
  Sex: Female
  Weight: 65.83 kg

DRUGS (3)
  1. SUBOXONE [Concomitant]
  2. NUVIGIL [Suspect]
     Dosage: 250 MILLIGRAM;
     Route: 048
  3. PROVIGIL [Suspect]
     Indication: SLEEP DISORDER
     Dosage: 200 MILLIGRAM;
     Route: 048

REACTIONS (1)
  - DRUG TOLERANCE [None]
